FAERS Safety Report 6084973-X (Version None)
Quarter: 2009Q1

REPORT INFORMATION
  Report Type: 
  Country: None (occurrence: None)
  Receive Date: 20090220
  Receipt Date: 20090212
  Transmission Date: 20090719
  Serious: Yes (Hospitalization, Disabling)
  Sender: FDA-Public Use
  Company Number: NO-JNJFOC-20090203312

PATIENT
  Sex: Male

DRUGS (4)
  1. RISPERDAL [Suspect]
     Indication: HALLUCINATION
     Route: 048
  2. ALBYL-E [Concomitant]
     Route: 048
  3. ZOLOFT [Concomitant]
     Route: 003
  4. FOLIC ACID [Concomitant]
     Route: 048

REACTIONS (1)
  - CEREBRAL INFARCTION [None]
